FAERS Safety Report 8481844-6 (Version None)
Quarter: 2012Q2

REPORT INFORMATION
  Report Type: 
  Country: None (occurrence: None)
  Receive Date: 20120402
  Receipt Date: 20110901
  Transmission Date: 20120825
  Serious: Yes (Hospitalization)
  Sender: FDA-Public Use
  Company Number: A-US2011-53515

PATIENT
  Age: 63 Year
  Sex: Male

DRUGS (4)
  1. VENTAVIS [Suspect]
  2. VENTAVIS [Suspect]
     Indication: PULMONARY ARTERIAL HYPERTENSION
     Dosage: RESPIRATORY
     Route: 055
  3. OXYGEN (OXYGEN) [Concomitant]
  4. DIURETICS [Concomitant]

REACTIONS (8)
  - FATIGUE [None]
  - DYSPNOEA [None]
  - CONTUSION [None]
  - DIZZINESS [None]
  - CHEST DISCOMFORT [None]
  - WEIGHT DECREASED [None]
  - DECREASED APPETITE [None]
  - HEADACHE [None]
